FAERS Safety Report 4819446-2 (Version None)
Quarter: 2005Q4

REPORT INFORMATION
  Report Type: 
  Country: None (occurrence: None)
  Receive Date: 20051103
  Receipt Date: 20051025
  Transmission Date: 20060501
  Serious: Yes (Other)
  Sender: FDA-Public Use
  Company Number: DE-JNJFOC-20051005046

PATIENT
  Sex: Female
  Weight: 64 kg

DRUGS (2)
  1. ITRACOL [Suspect]
     Route: 048
     Dates: start: 20050322, end: 20050601
  2. ITRACOL [Suspect]
     Indication: ONYCHOMYCOSIS
     Route: 048
     Dates: start: 20050322, end: 20050601

REACTIONS (1)
  - ARRHYTHMIA [None]
